FAERS Safety Report 5472250-7 (Version None)
Quarter: 2007Q3

REPORT INFORMATION
  Report Type: 
  Country: None (occurrence: None)
  Receive Date: 20070926
  Receipt Date: 20070911
  Transmission Date: 20080115
  Serious: Yes (Death, Hospitalization)
  Sender: FDA-Public Use
  Company Number: ABMES-07-0756

PATIENT
  Age: 59 Year
  Sex: Female
  Weight: 90 kg

DRUGS (4)
  1. ABRAXANE [Suspect]
     Indication: BREAST CANCER METASTATIC
     Dosage: 244 MG (125 MG/M2, WEEKLY - ONLY ONE DOSE GIVEN), INTRAVENOUS
     Route: 042
     Dates: start: 20070809, end: 20070809
  2. ZOMETA [Concomitant]
  3. DARVOCET [Concomitant]
  4. PRILOSEC [Concomitant]

REACTIONS (12)
  - DYSURIA [None]
  - HAEMOGLOBIN DECREASED [None]
  - HEART RATE INCREASED [None]
  - HEPATIC FAILURE [None]
  - MENTAL STATUS CHANGES [None]
  - OEDEMA PERIPHERAL [None]
  - OESOPHAGEAL VARICES HAEMORRHAGE [None]
  - PAIN IN EXTREMITY [None]
  - PLATELET COUNT ABNORMAL [None]
  - RASH [None]
  - RESPIRATORY RATE INCREASED [None]
  - WHITE BLOOD CELL COUNT DECREASED [None]
